FAERS Safety Report 6967360-9 (Version None)
Quarter: 2010Q3

REPORT INFORMATION
  Report Type: 
  Country: None (occurrence: None)
  Receive Date: 20100907
  Receipt Date: 20100827
  Transmission Date: 20110219
  Serious: Yes (Other)
  Sender: FDA-Public Use
  Company Number: AT-ASTRAZENECA-2010SE35425

PATIENT
  Age: 65 Year
  Sex: Female
  Weight: 63 kg

DRUGS (1)
  1. ARIMIDEX [Suspect]
     Route: 048
     Dates: start: 20081101

REACTIONS (4)
  - ARTHRALGIA [None]
  - BONE DENSITY ABNORMAL [None]
  - JOINT STIFFNESS [None]
  - MUCOUS MEMBRANE DISORDER [None]
